FAERS Safety Report 7639047-0 (Version None)
Quarter: 2011Q3

REPORT INFORMATION
  Report Type: 
  Country: None (occurrence: None)
  Receive Date: 20110727
  Receipt Date: 20110707
  Transmission Date: 20111222
  Serious: No
  Sender: FDA-Public Use
  Company Number: US-B.I. PHARMACEUTICALS,INC./RIDGEFIELD-2011-BP-17214BP

PATIENT
  Age: 50 Year
  Sex: Female

DRUGS (11)
  1. CELEBREX [Concomitant]
     Indication: FIBROMYALGIA
     Route: 048
  2. BENADRYL [Concomitant]
     Indication: MULTIPLE ALLERGIES
     Route: 048
  3. MEGACE [Concomitant]
     Indication: MENOPAUSE
     Route: 048
  4. NORTRIPTYLINE HCL [Concomitant]
     Indication: NEUROPATHY PERIPHERAL
     Route: 048
  5. SPIRIVA [Suspect]
     Indication: CHRONIC OBSTRUCTIVE PULMONARY DISEASE
     Dosage: 18 MCG
     Route: 055
     Dates: start: 20110101
  6. MULTI-VITAMINS [Concomitant]
     Indication: ROUTINE HEALTH MAINTENANCE
     Route: 048
  7. BIOTIN [Concomitant]
     Indication: HAIR GROWTH ABNORMAL
     Route: 048
  8. SPIRIVA [Suspect]
     Dosage: 18 MCG
     Route: 048
     Dates: start: 20110101
  9. QVAR 40 [Concomitant]
     Indication: ASTHMA
     Route: 055
  10. QVAR 40 [Concomitant]
     Indication: CHRONIC OBSTRUCTIVE PULMONARY DISEASE
  11. FOLIC ACID [Concomitant]
     Indication: HAIR GROWTH ABNORMAL
     Route: 048

REACTIONS (3)
  - INCORRECT ROUTE OF DRUG ADMINISTRATION [None]
  - FATIGUE [None]
  - NASAL CONGESTION [None]
